FAERS Safety Report 4979132-5 (Version None)
Quarter: 2006Q2

REPORT INFORMATION
  Report Type: 
  Country: None (occurrence: None)
  Receive Date: 20060421
  Receipt Date: 20060411
  Transmission Date: 20061013
  Serious: Yes (Other)
  Sender: FDA-Public Use
  Company Number: JP-JNJFOC-20060401397

PATIENT
  Age: 71 Year
  Sex: Female

DRUGS (6)
  1. ITRIZOLE [Suspect]
     Indication: NAIL TINEA
     Route: 048
     Dates: start: 20060322, end: 20060329
  2. FELODIPINE [Concomitant]
     Indication: HYPERTENSION
     Route: 048
     Dates: start: 20040101
  3. OXAZOLAM [Concomitant]
     Indication: ANXIETY
     Route: 048
     Dates: start: 20040101
  4. BENEXATE HYDROCHLORIDE BETADEX [Concomitant]
     Indication: GASTROINTESTINAL DISORDER
     Route: 048
     Dates: start: 20040101
  5. MAGNESIUM OXIDE [Concomitant]
     Indication: GASTROINTESTINAL DISORDER
     Route: 048
     Dates: start: 20040101
  6. ZOLPIDEM TARTRATE [Concomitant]
     Route: 048
     Dates: start: 20040101

REACTIONS (3)
  - OEDEMA [None]
  - PLEURAL EFFUSION [None]
  - WEIGHT INCREASED [None]
